FAERS Safety Report 9820254 (Version 2)
Quarter: 2014Q1

REPORT INFORMATION
  Report Type: Spontaneous
  Country: US (occurrence: US)
  Receive Date: 20140116
  Receipt Date: 20140310
  Transmission Date: 20141002
  Serious: Yes (Death, Hospitalization)
  Sender: FDA-Public Use
  Company Number: US-NOVOPROD-397339

PATIENT
  Age: 63 Year
  Sex: Male
  Weight: 121.9 kg

DRUGS (6)
  1. VICTOZA [Suspect]
     Indication: TYPE 2 DIABETES MELLITUS
     Dosage: 18MG/3ML ONCE DAILY
     Route: 058
     Dates: start: 20100905, end: 20101005
  2. VICTOZA [Suspect]
     Dosage: 18MG/3ML ONCE DAILY
     Route: 058
     Dates: start: 20110517, end: 20110613
  3. FISH OIL [Concomitant]
     Indication: BLOOD CHOLESTEROL
  4. BAYER ASPIRIN [Concomitant]
     Indication: BLOOD DISORDER
  5. MULTIVITAMIN                       /00097801/ [Concomitant]
     Indication: PRODUCT USED FOR UNKNOWN INDICATION
  6. GENTLE LAXATIVE [Concomitant]
     Indication: CONSTIPATION
     Dosage: UNK
     Dates: start: 2011, end: 201303

REACTIONS (1)
  - Pancreatic carcinoma [Fatal]
